FAERS Safety Report 15227295 (Version 1)
Quarter: 2018Q3

REPORT INFORMATION
  Report Type: Spontaneous
  Country: DE (occurrence: DE)
  Receive Date: 20180801
  Receipt Date: 20180801
  Transmission Date: 20181010
  Serious: Yes (Hospitalization)
  Sender: FDA-Public Use
  Company Number: PHHY2013DE176442

PATIENT
  Age: 73 Year
  Sex: Male
  Weight: 94 kg

DRUGS (12)
  1. OXALIPLATIN. [Suspect]
     Active Substance: OXALIPLATIN
     Indication: COLORECTAL CANCER METASTATIC
     Dosage: 170 MG, Q2W (85MG/M2 CYCLE 5, THERAPY RESUMED ON 18/JUN/2013)
     Route: 042
     Dates: start: 20130409, end: 20131105
  2. METFORMIN [Concomitant]
     Active Substance: METFORMIN HYDROCHLORIDE
     Indication: DIABETES MELLITUS
     Dosage: 2000 MG, QD
     Route: 048
  3. FOLINIC ACID [Suspect]
     Active Substance: LEUCOVORIN
     Indication: COLORECTAL CANCER METASTATIC
     Dosage: 400 MG, Q2W (200MG/M2CYCLE 5, THERAPY RESUMED ON 18/JUN/2013)
     Route: 042
     Dates: start: 20130409, end: 20131127
  4. FOLINIC ACID [Suspect]
     Active Substance: LEUCOVORIN
     Dosage: 400 MG, Q2W
     Route: 042
     Dates: start: 20140107, end: 20140122
  5. 5?FU [Suspect]
     Active Substance: FLUOROURACIL
     Indication: COLORECTAL CANCER METASTATIC
     Dosage: 800 MG, Q2W (1000MG/M2)
     Route: 040
     Dates: start: 20130409, end: 20140121
  6. 5?FU [Suspect]
     Active Substance: FLUOROURACIL
     Dosage: 2400 MG, Q2W (CYCLE 5, THERAPY RESUMED ON 18 JUN 2013)
     Route: 042
  7. METFORMIN [Concomitant]
     Active Substance: METFORMIN HYDROCHLORIDE
     Dosage: 2000 MG, QD
     Route: 048
  8. LISINOPRIL. [Concomitant]
     Active Substance: LISINOPRIL
     Indication: HYPERTENSION
     Dosage: 1 OT, QD
     Route: 048
  9. BEVACIZUMAB. [Suspect]
     Active Substance: BEVACIZUMAB
     Indication: COLORECTAL CANCER METASTATIC
     Dosage: 5 MG/KG, Q2W (470 MG)
     Route: 042
     Dates: start: 20130409, end: 20130521
  10. FOLINIC ACID [Suspect]
     Active Substance: LEUCOVORIN
     Dosage: 800 MG, Q2W
     Route: 042
     Dates: start: 20131210, end: 20131211
  11. BEVACIZUMAB. [Suspect]
     Active Substance: BEVACIZUMAB
     Dosage: CYCLE 5 RESUMED
     Route: 042
  12. EUTHYROX [Concomitant]
     Active Substance: LEVOTHYROXINE SODIUM
     Indication: HYPOTHYROIDISM
     Dosage: 100 UG, QD
     Route: 048

REACTIONS (4)
  - Cerebrovascular accident [Recovered/Resolved]
  - Aphasia [Recovered/Resolved]
  - Glycosuria [Recovered/Resolved]
  - Proteinuria [Recovered/Resolved]

NARRATIVE: CASE EVENT DATE: 20130423
